FAERS Safety Report 8905175 (Version 3)
Quarter: 2012Q4

REPORT INFORMATION
  Report Type: 
  Country: JP (occurrence: JP)
  Receive Date: 20121109
  Receipt Date: 20121119
  Transmission Date: 20130627
  Serious: Yes (Other)
  Sender: FDA-Public Use
  Company Number: JP-PFIZER INC-2012277609

PATIENT
  Age: 21 Year
  Sex: Female
  Weight: 64 kg

DRUGS (10)
  1. FOSPHENYTOIN SODIUM [Suspect]
     Indication: STATUS EPILEPTICUS
     Dosage: 1500 mg in twice (750 mg each for 5 minutes)
     Route: 042
     Dates: start: 20120511
  2. FOSPHENYTOIN SODIUM [Suspect]
     Dosage: 1350mg/day (at slow dosing rate)
     Route: 042
     Dates: start: 20120520
  3. DEPAKENE [Concomitant]
     Indication: EPILEPSY
     Dosage: 16.5 mL, UNK
     Dates: start: 20091020
  4. DEPAKENE [Concomitant]
     Dosage: 2.5 mL (1 time each)
     Dates: start: 20091020
  5. DEPAKENE [Concomitant]
     Dosage: 2.0 mL
     Dates: start: 20091020
  6. DEPAKENE [Concomitant]
     Dosage: 16.5 ml (4 times each)
     Dates: start: 20091020
  7. EPILEO PETIT MAL [Concomitant]
     Indication: EPILEPSY
     Dosage: 375 mg twice every 12 hours
     Dates: start: 20091020
  8. POTASSIUM BROMIDE [Concomitant]
     Indication: EPILEPSY
     Dosage: 637.5 mg twice every 12 hours
     Dates: start: 20091020
  9. MYSTAN [Concomitant]
     Indication: EPILEPSY
     Dosage: 10 mg, 2x/day
     Dates: start: 20091020
  10. TOPINA [Concomitant]
     Indication: EPILEPSY
     Dosage: 165 mg twice every 12 hours
     Dates: start: 20091020

REACTIONS (9)
  - Oedema peripheral [Recovered/Resolved]
  - Urticaria [Recovered/Resolved]
  - Peripheral coldness [Recovered/Resolved]
  - Pyrexia [Recovered/Resolved]
  - Drug eruption [Recovered/Resolved]
  - Conjunctival hyperaemia [Recovered/Resolved]
  - Tongue disorder [Recovered/Resolved]
  - Oral mucosal erythema [Recovered/Resolved]
  - Infection [Recovered/Resolved]
